FAERS Safety Report 19986110 (Version 2)
Quarter: 2021Q4

REPORT INFORMATION
  Report Type: Report from Study
  Country: EG (occurrence: EG)
  Receive Date: 20211022
  Receipt Date: 20211124
  Transmission Date: 20220303
  Serious: Yes (Other)
  Sender: FDA-Public Use
  Company Number: EG-NOVARTISPH-NVSC2021EG237971

PATIENT
  Age: 36 Year
  Sex: Female

DRUGS (2)
  1. PIQRAY [Suspect]
     Active Substance: ALPELISIB
     Indication: Breast cancer metastatic
     Dosage: 1 DF, QD
     Route: 048
     Dates: start: 20210704
  2. FASLODEX [Concomitant]
     Active Substance: FULVESTRANT
     Indication: Breast cancer
     Dosage: UNK
     Route: 065

REACTIONS (17)
  - Depression [Recovering/Resolving]
  - Hepatic cancer [Unknown]
  - SARS-CoV-2 test positive [Recovered/Resolved]
  - Chest pain [Unknown]
  - Eating disorder [Recovering/Resolving]
  - Vertigo [Recovering/Resolving]
  - Heart rate irregular [Recovering/Resolving]
  - Mouth injury [Recovering/Resolving]
  - Dysstasia [Recovering/Resolving]
  - Pyrexia [Recovering/Resolving]
  - Fatigue [Recovering/Resolving]
  - Suicidal ideation [Recovering/Resolving]
  - Vomiting [Recovering/Resolving]
  - Pain [Recovering/Resolving]
  - Gait disturbance [Recovering/Resolving]
  - Dyspnoea [Recovering/Resolving]
  - Inappropriate schedule of product administration [Unknown]

NARRATIVE: CASE EVENT DATE: 20210704
